FAERS Safety Report 19516289 (Version 2)
Quarter: 2021Q3

REPORT INFORMATION
  Report Type: Spontaneous
  Country: US (occurrence: US)
  Receive Date: 20210709
  Receipt Date: 20210709
  Transmission Date: 20211014
  Serious: No
  Sender: FDA-Public Use
  Company Number: US-ASTELLAS-2021US001798

PATIENT
  Sex: Male

DRUGS (3)
  1. METOPROLOL. [Interacting]
     Active Substance: METOPROLOL
     Indication: PRODUCT USED FOR UNKNOWN INDICATION
     Dosage: UNK UNK, UNKNOWN FREQ.
     Route: 065
  2. MYRBETRIQ [Suspect]
     Active Substance: MIRABEGRON
     Indication: NOCTURIA
     Route: 065
     Dates: start: 202009
  3. MYRBETRIQ [Interacting]
     Active Substance: MIRABEGRON
     Indication: NOCTURIA
     Route: 065

REACTIONS (8)
  - Muscle spasms [Unknown]
  - Dry mouth [Unknown]
  - Drug interaction [Unknown]
  - Insurance issue [Unknown]
  - Blood pressure increased [Unknown]
  - Inability to afford medication [Unknown]
  - Dizziness [Not Recovered/Not Resolved]
  - Drug ineffective [Unknown]
